FAERS Safety Report 4352284-6 (Version None)
Quarter: 2004Q2

REPORT INFORMATION
  Report Type: 
  Country: None (occurrence: None)
  Receive Date: 20040429
  Receipt Date: 20030328
  Transmission Date: 20050107
  Serious: Yes (Other)
  Sender: FDA-Public Use
  Company Number: 20529

PATIENT
  Age: 66 Year
  Sex: Male

DRUGS (3)
  1. ALDARA [Suspect]
     Indication: ACTINIC KERATOSIS
     Dosage: (2 IN 1 WEEK(S)), TOPICAL
     Route: 061
     Dates: start: 20020503, end: 20020722
  2. PRILOSEC [Concomitant]
  3. DIGITEK [Concomitant]

REACTIONS (4)
  - APPLICATION SITE ERYTHEMA [None]
  - LOCALISED EXFOLIATION [None]
  - SCAB [None]
  - SYSTEMIC LUPUS ERYTHEMATOSUS RASH [None]
